FAERS Safety Report 4268640-0 (Version None)
Quarter: 2004Q1

REPORT INFORMATION
  Report Type: 
  Country: None (occurrence: None)
  Receive Date: 20040112
  Receipt Date: 20031127
  Transmission Date: 20041129
  Serious: Yes (Life-Threatening, Hospitalization)
  Sender: FDA-Public Use
  Company Number: WAES 0312DEU00055

PATIENT
  Age: 45 Year
  Sex: Male

DRUGS (5)
  1. ATORVASTATIN CALCIUM [Concomitant]
     Route: 048
     Dates: start: 20030701
  2. ZETIA [Suspect]
     Route: 048
     Dates: start: 20030318, end: 20030701
  3. ZETIA [Suspect]
     Route: 048
     Dates: start: 20031001, end: 20031101
  4. ZETIA [Suspect]
     Route: 048
     Dates: start: 20030318, end: 20030701
  5. ZETIA [Suspect]
     Route: 048
     Dates: start: 20031001, end: 20031101

REACTIONS (3)
  - COLITIS ULCERATIVE [None]
  - HAEMATOCHEZIA [None]
  - HAEMOGLOBIN S DECREASED [None]
